FAERS Safety Report 11562915 (Version 7)
Quarter: 2016Q2

REPORT INFORMATION
  Report Type: Report from Study
  Country: BR (occurrence: BR)
  Receive Date: 20150928
  Receipt Date: 20160427
  Transmission Date: 20160815
  Serious: Yes (Hospitalization, Other)
  Sender: FDA-Public Use
  Company Number: PHHY2015BR116288

PATIENT
  Age: 62 Year
  Sex: Female
  Weight: 68 kg

DRUGS (6)
  1. OMEPRAZOLE. [Concomitant]
     Active Substance: OMEPRAZOLE
     Indication: GASTRITIS
     Dosage: 1 DF, QD
     Route: 048
  2. TASIGNA [Suspect]
     Active Substance: NILOTINIB
     Dosage: 2 DF, QD
     Route: 048
     Dates: start: 2010
  3. TASIGNA [Suspect]
     Active Substance: NILOTINIB
     Indication: CHRONIC MYELOID LEUKAEMIA
     Dosage: 1 DF, Q12H IN THE MORNING AND AT NIGHT
     Route: 065
     Dates: start: 20091222
  4. TASIGNA [Suspect]
     Active Substance: NILOTINIB
     Dosage: 4 DF, QD
     Route: 065
  5. RIVOTRIL [Concomitant]
     Active Substance: CLONAZEPAM
     Indication: SLEEP DISORDER
     Dosage: 0.5 DF, QD
     Route: 048
     Dates: start: 2009
  6. TASIGNA [Suspect]
     Active Substance: NILOTINIB
     Dosage: 1 DF, BID (ONE IN THE MORNING AND ONE AT NIGHT)
     Route: 065

REACTIONS (36)
  - Stool analysis abnormal [Not Recovered/Not Resolved]
  - Emotional disorder [Unknown]
  - Feeling of despair [Unknown]
  - Feeling abnormal [Recovering/Resolving]
  - Erythema [Recovered/Resolved]
  - Vulvovaginal pruritus [Recovered/Resolved]
  - Gastritis [Unknown]
  - Dysstasia [Recovered/Resolved]
  - Thyroid disorder [Unknown]
  - Weight increased [Unknown]
  - Colitis [Recovered/Resolved]
  - Pruritus [Recovered/Resolved]
  - Abdominal pain [Unknown]
  - Pain in extremity [Recovered/Resolved]
  - Eating disorder [Recovered/Resolved]
  - Malaise [Recovered/Resolved]
  - Platelet count decreased [Recovered/Resolved]
  - Neutrophil count decreased [Unknown]
  - Drug intolerance [Unknown]
  - Colitis [Not Recovered/Not Resolved]
  - Anosmia [Unknown]
  - Product quality issue [Unknown]
  - Diarrhoea [Unknown]
  - Pain in extremity [Not Recovered/Not Resolved]
  - Mood altered [Unknown]
  - Gastric disorder [Recovering/Resolving]
  - Dehydration [Unknown]
  - Nausea [Unknown]
  - Dermatitis allergic [Recovered/Resolved]
  - Abdominal pain upper [Not Recovered/Not Resolved]
  - Fear [Unknown]
  - Nipple disorder [Unknown]
  - Liver disorder [Recovered/Resolved]
  - Anxiety [Unknown]
  - Hypersensitivity [Recovered/Resolved]
  - Incorrect dose administered [Unknown]

NARRATIVE: CASE EVENT DATE: 201509
